FAERS Safety Report 21087689 (Version 2)
Quarter: 2022Q3

REPORT INFORMATION
  Report Type: Spontaneous
  Country: UY (occurrence: None)
  Receive Date: 20220715
  Receipt Date: 20220901
  Transmission Date: 20221027
  Serious: Yes (Death, Hospitalization, Other)
  Sender: FDA-Public Use
  Company Number: UY-ROCHE-3138362

PATIENT
  Sex: Male

DRUGS (3)
  1. POLIVY [Suspect]
     Active Substance: POLATUZUMAB VEDOTIN-PIIQ
     Indication: Diffuse large B-cell lymphoma
     Dosage: FOR 6 CYCLES
     Route: 042
     Dates: start: 20220131, end: 20220526
  2. RITUXIMAB [Suspect]
     Active Substance: RITUXIMAB
     Indication: Diffuse large B-cell lymphoma
     Dosage: DOSE AND FREQUENCY WERE NOT REPORTED
     Route: 065
  3. BENDAMUSTINE [Concomitant]
     Active Substance: BENDAMUSTINE
     Dosage: DOSE AND FREQUENCY WERE NOT REPORTED

REACTIONS (19)
  - Urinary tract infection [Unknown]
  - Ill-defined disorder [Unknown]
  - Neutropenia [Unknown]
  - Pancytopenia [Unknown]
  - Anaemia [Unknown]
  - Thrombocytopenia [Unknown]
  - Contusion [Unknown]
  - Ecchymosis [Unknown]
  - Renal failure [Unknown]
  - Blood creatinine abnormal [Unknown]
  - Azotaemia [Unknown]
  - Blood bilirubin increased [Unknown]
  - Hepatic enzyme increased [Unknown]
  - Pelvic fluid collection [Unknown]
  - Abdominal distension [Unknown]
  - Abdominal pain [Unknown]
  - Renal failure [Unknown]
  - Asthenia [Unknown]
  - Intestinal sepsis [Fatal]
